FAERS Safety Report 4811501-6 (Version None)
Quarter: 2005Q4

REPORT INFORMATION
  Report Type: 
  Country: None (occurrence: None)
  Receive Date: 20051027
  Receipt Date: 20050921
  Transmission Date: 20060501
  Serious: Yes (Hospitalization)
  Sender: FDA-Public Use
  Company Number: FR-BOEHRINGER INGELHEIM PHARMACEUTICALS, INC.-2005-FF-00646FF

PATIENT
  Sex: Male
  Weight: 73 kg

DRUGS (6)
  1. TIPRANAVIR + RITONAVIR CO-ADMIN [Suspect]
     Indication: HIV INFECTION
     Dosage: TPV/RTV: 500/200 MG BID
     Route: 048
     Dates: start: 20040226
  2. ABACAVIR SULFATE [Concomitant]
     Indication: HIV INFECTION
     Route: 048
     Dates: start: 20020503
  3. LAMIVUDINE [Concomitant]
     Indication: HIV INFECTION
     Route: 048
     Dates: start: 20020503
  4. VIDEX [Concomitant]
     Indication: HIV INFECTION
     Route: 048
     Dates: start: 20020503
  5. LEDERFOLINE [Concomitant]
     Indication: PROPHYLAXIS
     Route: 048
     Dates: start: 20041126
  6. BACTRIM [Concomitant]
     Indication: PROPHYLAXIS
     Route: 048
     Dates: start: 20041126

REACTIONS (3)
  - CAMPYLOBACTER INTESTINAL INFECTION [None]
  - LUNG DISORDER [None]
  - PNEUMONIA STREPTOCOCCAL [None]
